FAERS Safety Report 5843957-4 (Version None)
Quarter: 2008Q3

REPORT INFORMATION
  Report Type: 
  Country: None (occurrence: None)
  Receive Date: 20080808
  Receipt Date: 20080730
  Transmission Date: 20090109
  Serious: Yes (Other)
  Sender: FDA-Public Use
  Company Number: S08-FRA-02328-01

PATIENT
  Age: 24 Year
  Sex: Male
  Weight: 69 kg

DRUGS (1)
  1. ESCITALOPRAM OXALATE [Suspect]
     Indication: DEPRESSION
     Dosage: 10 MG (10 MG, 1 IN 1 D), ORAL
     Route: 048
     Dates: start: 20070610, end: 20080508

REACTIONS (4)
  - ANOREXIA [None]
  - CLONUS [None]
  - HYPERHIDROSIS [None]
  - WEIGHT DECREASED [None]
